FAERS Safety Report 20118006 (Version 1)
Quarter: 2021Q4

REPORT INFORMATION
  Report Type: Spontaneous
  Country: NL (occurrence: NL)
  Receive Date: 20211126
  Receipt Date: 20211126
  Transmission Date: 20220304
  Serious: Yes (Other)
  Sender: FDA-Public Use
  Company Number: None

PATIENT
  Age: 41 Year
  Sex: Female
  Weight: 102 kg

DRUGS (4)
  1. TRAZODONE HYDROCHLORIDE [Interacting]
     Active Substance: TRAZODONE HYDROCHLORIDE
     Indication: Sleep disorder
     Dosage: 1XPD 1
     Dates: start: 20210719
  2. TRANYLCYPROMINE SULFATE [Interacting]
     Active Substance: TRANYLCYPROMINE SULFATE
     Indication: Depression
     Dosage: TABLET 20 MG, 2 X PD, 2 AND 1 PIECE
     Dates: start: 201410
  3. DESLORATADINE [Concomitant]
     Active Substance: DESLORATADINE
     Dosage: TABLET, 5 MG (MILLIGRAM)
  4. OXAZEPAM [Concomitant]
     Active Substance: OXAZEPAM
     Dosage: TABLET, 10 MG (MILLIGRAM)

REACTIONS (14)
  - Nausea [Recovering/Resolving]
  - Blood pressure increased [Recovering/Resolving]
  - Hyperacusis [Recovering/Resolving]
  - Chest pain [Recovering/Resolving]
  - Serotonin syndrome [Recovering/Resolving]
  - Pulmonary oedema [Recovering/Resolving]
  - Malaise [Recovering/Resolving]
  - Hyperhidrosis [Recovering/Resolving]
  - Visual impairment [Recovering/Resolving]
  - Potentiating drug interaction [Unknown]
  - Dyspnoea [Recovering/Resolving]
  - Thunderclap headache [Recovering/Resolving]
  - Photophobia [Recovering/Resolving]
  - Dizziness [Recovering/Resolving]

NARRATIVE: CASE EVENT DATE: 20210927
